FAERS Safety Report 20999849 (Version 1)
Quarter: 2022Q2

REPORT INFORMATION
  Report Type: Spontaneous
  Country: GB (occurrence: GB)
  Receive Date: 20220623
  Receipt Date: 20220623
  Transmission Date: 20220721
  Serious: Yes (Other)
  Sender: FDA-Public Use
  Company Number: GB-MHRA-MED-202206171034084590-QBFLP

PATIENT

DRUGS (4)
  1. TRELEGY ELLIPTA [Suspect]
     Active Substance: FLUTICASONE FUROATE\UMECLIDINIUM BROMIDE\VILANTEROL TRIFENATATE
     Indication: Chronic obstructive pulmonary disease
     Dosage: 1 DF, QD, 1 (INHALATION EACH MORNING. 92/55/22 MCG INHALER)
     Route: 055
     Dates: start: 20220521, end: 20220601
  2. ATORVASTATIN [Concomitant]
     Active Substance: ATORVASTATIN
     Indication: Mitral valve incompetence
     Dosage: 20 MG
     Route: 065
  3. FLUTICASONE FUROATE [Concomitant]
     Active Substance: FLUTICASONE FUROATE
     Indication: Product used for unknown indication
     Dosage: 27.5 ?G
     Route: 045
  4. ALBUTEROL [Concomitant]
     Active Substance: ALBUTEROL
     Indication: Product used for unknown indication
     Dosage: UNK
     Route: 055

REACTIONS (5)
  - Pulmonary congestion [Unknown]
  - Productive cough [Recovering/Resolving]
  - Dysphonia [Recovered/Resolved]
  - Condition aggravated [Unknown]
  - Drug ineffective [Unknown]

NARRATIVE: CASE EVENT DATE: 20220521
